FAERS Safety Report 16607913 (Version 1)
Quarter: 2019Q3

REPORT INFORMATION
  Report Type: Report from Study
  Country: US (occurrence: US)
  Receive Date: 20190722
  Receipt Date: 20190722
  Transmission Date: 20191004
  Serious: Yes (Other)
  Sender: FDA-Public Use
  Company Number: US-JNJFOC-20190718867

PATIENT
  Sex: Male

DRUGS (5)
  1. IMBRUVICA [Suspect]
     Active Substance: IBRUTINIB
     Indication: CHRONIC LYMPHOCYTIC LEUKAEMIA
     Dosage: 420 MG, QD
     Route: 048
     Dates: start: 20190306
  2. REISHI MUSHROOM [Concomitant]
  3. MULTIVITAMINS                      /00116001/ [Concomitant]
     Active Substance: VITAMINS
  4. TURMERIC                           /01079601/ [Concomitant]
     Active Substance: HERBALS\TURMERIC
  5. GINGER                             /01646601/ [Concomitant]
     Active Substance: GINGER

REACTIONS (3)
  - Internal haemorrhage [Unknown]
  - Swelling [Unknown]
  - Injury [Unknown]
